FAERS Safety Report 8128151-9 (Version None)
Quarter: 2012Q1

REPORT INFORMATION
  Report Type: 
  Country: None (occurrence: None)
  Receive Date: 20120210
  Receipt Date: 20120206
  Transmission Date: 20120608
  Serious: Yes (Hospitalization)
  Sender: FDA-Public Use
  Company Number: DE-PFIZER INC-2011285329

PATIENT
  Age: 66 Year
  Sex: Male
  Weight: 79 kg

DRUGS (8)
  1. TEMSIROLIMUS [Suspect]
     Indication: METASTATIC RENAL CELL CARCINOMA
     Dosage: 25 MG, WEEKLY
     Route: 042
     Dates: start: 20111027, end: 20111103
  2. INSULIN BASAL [Concomitant]
  3. PANTOPRAZOLE [Concomitant]
     Indication: PROPHYLAXIS
     Dosage: 40 UNK, UNK
     Route: 048
     Dates: start: 20111110, end: 20111121
  4. ONDANSETRON HCL [Concomitant]
     Indication: PREMEDICATION
     Dosage: 8 MG, WEEKLY
     Dates: start: 20111027
  5. CORTISONE [Concomitant]
     Indication: PREMEDICATION
  6. CLEMASTINE FUMARATE [Concomitant]
     Indication: PREMEDICATION
     Dosage: 2 MG, WEEKLY
     Dates: start: 20111027
  7. DEXAMETHASONE [Concomitant]
     Indication: PREMEDICATION
     Dosage: 4 MG, WEEKLY
     Dates: start: 20111027
  8. METFORMIN HCL [Suspect]
     Indication: DIABETES MELLITUS
     Dosage: 850 UNK, 3X/DAY
     Route: 048
     Dates: start: 19960101, end: 20111117

REACTIONS (1)
  - HEPATIC ENZYME ABNORMAL [None]
